FAERS Safety Report 4388335-2 (Version None)
Quarter: 2004Q2

REPORT INFORMATION
  Report Type: 
  Country: None (occurrence: None)
  Receive Date: 20040625
  Receipt Date: 20040618
  Transmission Date: 20050107
  Serious: Yes (Hospitalization)
  Sender: FDA-Public Use
  Company Number: FRWYE839218JUN04

PATIENT
  Age: 78 Year
  Sex: Female

DRUGS (1)
  1. EFFEXOR XR [Suspect]
     Dosage: 37.5 MG 2X PER 1 DAY ORAL
     Route: 048

REACTIONS (2)
  - EPILEPSY [None]
  - MANIA [None]
